FAERS Safety Report 8167974-7 (Version None)
Quarter: 2012Q1

REPORT INFORMATION
  Report Type: 
  Country: None (occurrence: None)
  Receive Date: 20120227
  Receipt Date: 20120130
  Transmission Date: 20120608
  Serious: Yes (Other)
  Sender: FDA-Public Use
  Company Number: JP-GLAXOSMITHKLINE-B0779134A

PATIENT
  Sex: Male

DRUGS (4)
  1. RELENZA [Suspect]
     Indication: INFLUENZA
     Dosage: 20MG PER DAY
     Route: 055
     Dates: start: 20120130, end: 20120203
  2. ASVERIN [Concomitant]
     Dosage: 60MG PER DAY
     Route: 048
     Dates: start: 20120130, end: 20120203
  3. MUCODYNE [Concomitant]
     Dosage: 750MG PER DAY
     Route: 048
     Dates: start: 20120130, end: 20120203
  4. POLARAMINE [Concomitant]
     Dosage: 4MG PER DAY
     Route: 048
     Dates: start: 20120130, end: 20120203

REACTIONS (2)
  - HALLUCINATION, VISUAL [None]
  - DELIRIUM [None]
